FAERS Safety Report 9775740 (Version 1)
Quarter: 2013Q4

REPORT INFORMATION
  Report Type: Report from Study
  Country: DE (occurrence: TR)
  Receive Date: 20131220
  Receipt Date: 20131220
  Transmission Date: 20140711
  Serious: Yes (Death)
  Sender: FDA-Public Use
  Company Number: DE-ACTELION-A-NJ2013-92759

PATIENT
  Age: 8 Month
  Sex: Female

DRUGS (1)
  1. VENTAVIS [Suspect]
     Indication: PULMONARY HYPERTENSION
     Dosage: 6X2
     Route: 055
     Dates: start: 20130924, end: 20131211

REACTIONS (2)
  - Death [Fatal]
  - Off label use [Unknown]
